APPROVED DRUG PRODUCT: TOPOTECAN HYDROCHLORIDE
Active Ingredient: TOPOTECAN HYDROCHLORIDE
Strength: EQ 4MG BASE/VIAL
Dosage Form/Route: INJECTABLE;INJECTION
Application: A201191 | Product #001 | TE Code: AP
Applicant: DR REDDYS LABORATORIES LTD
Approved: Mar 9, 2011 | RLD: No | RS: No | Type: RX